FAERS Safety Report 6555014-2 (Version None)
Quarter: 2010Q1

REPORT INFORMATION
  Report Type: 
  Country: None (occurrence: None)
  Receive Date: 20100126
  Receipt Date: 20100126
  Transmission Date: 20100710
  Serious: No
  Sender: FDA-Public Use
  Company Number: None

PATIENT
  Age: 60 Year
  Sex: Female
  Weight: 59.1 kg

DRUGS (1)
  1. SYNTHROID [Suspect]
     Indication: HYPERTHYROIDISM
     Dates: start: 20000101, end: 20100101

REACTIONS (3)
  - CARPAL TUNNEL SYNDROME [None]
  - DRUG INEFFECTIVE [None]
  - OSTEOPOROSIS [None]
